FAERS Safety Report 22598206 (Version 1)
Quarter: 2023Q2

REPORT INFORMATION
  Report Type: Spontaneous
  Country: US (occurrence: None)
  Receive Date: 20230614
  Receipt Date: 20230614
  Transmission Date: 20230722
  Serious: No
  Sender: FDA-Public Use
  Company Number: US-MDD US Operations-MDD202302-000592

PATIENT
  Age: 70 Year
  Sex: Male

DRUGS (7)
  1. APOKYN [Suspect]
     Active Substance: APOMORPHINE HYDROCHLORIDE
     Indication: Parkinson^s disease
     Dates: start: 20230209
  2. APOKYN [Suspect]
     Active Substance: APOMORPHINE HYDROCHLORIDE
  3. CARBIDOPA\LEVODOPA [Concomitant]
     Active Substance: CARBIDOPA\LEVODOPA
     Dosage: NOT PROVIDED
  4. ROPINIROLE [Concomitant]
     Active Substance: ROPINIROLE
     Dosage: NOT PROVIDED
  5. ENTACAPONE [Concomitant]
     Active Substance: ENTACAPONE
     Dosage: NOT PROVIDED
  6. AMLODIPINE [Concomitant]
     Active Substance: AMLODIPINE BESYLATE
     Dosage: NOT PROVIDED
  7. LISINOPRIL [Concomitant]
     Active Substance: LISINOPRIL
     Dosage: NOT PROVIDED

REACTIONS (1)
  - Erection increased [Recovered/Resolved]

NARRATIVE: CASE EVENT DATE: 20230209
